FAERS Safety Report 13487577 (Version 1)
Quarter: 2017Q2

REPORT INFORMATION
  Report Type: Spontaneous
  Country: RU (occurrence: RU)
  Receive Date: 20170426
  Receipt Date: 20170426
  Transmission Date: 20170830
  Serious: No
  Sender: FDA-Public Use
  Company Number: RU-ALKERMES INC.-ALK-2016-003057

PATIENT
  Age: 40 Year
  Sex: Female

DRUGS (1)
  1. VIVITROL [Suspect]
     Active Substance: NALTREXONE
     Indication: ALCOHOLISM
     Dosage: 380 MG, QMO
     Route: 030
     Dates: start: 20161014

REACTIONS (2)
  - Alcohol use [Unknown]
  - Drug ineffective [Unknown]

NARRATIVE: CASE EVENT DATE: 201610
